FAERS Safety Report 12698737 (Version 1)
Quarter: 2016Q3

REPORT INFORMATION
  Report Type: Spontaneous
  Country: BG (occurrence: BG)
  Receive Date: 20160830
  Receipt Date: 20160830
  Transmission Date: 20161109
  Serious: Yes (Other)
  Sender: FDA-Public Use
  Company Number: BG-BAYER-2016-163009

PATIENT
  Age: 8 Year
  Sex: Male

DRUGS (6)
  1. PREDNISOLONE. [Suspect]
     Active Substance: PREDNISOLONE
     Dosage: UNK
  2. DOXORUBICIN [Concomitant]
     Active Substance: DOXORUBICIN
  3. ETOPOSIDE. [Concomitant]
     Active Substance: ETOPOSIDE
  4. DACARBAZINE. [Suspect]
     Active Substance: DACARBAZINE
     Dosage: UNK
  5. VINCRISTINE [Concomitant]
     Active Substance: VINCRISTINE
  6. CYCLOPHOSPHAMIDE. [Concomitant]
     Active Substance: CYCLOPHOSPHAMIDE

REACTIONS (8)
  - Dysarthria [None]
  - Secondary cerebellar degeneration [None]
  - Ataxia [Not Recovered/Not Resolved]
  - Diplopia [None]
  - Brain oedema [None]
  - Hypotonia [None]
  - Nystagmus [Not Recovered/Not Resolved]
  - Intention tremor [None]
